FAERS Safety Report 9808287 (Version 1)
Quarter: 2014Q1

REPORT INFORMATION
  Report Type: Spontaneous
  Country: FR (occurrence: FR)
  Receive Date: 20140110
  Receipt Date: 20140110
  Transmission Date: 20141002
  Serious: Yes (Hospitalization)
  Sender: FDA-Public Use
  Company Number: FR-UCBSA-108233

PATIENT
  Age: 66 Year
  Sex: Male

DRUGS (9)
  1. KEPPRA [Suspect]
     Indication: EPILEPSY
     Route: 048
     Dates: start: 20131206
  2. KARDEGIC [Concomitant]
     Dosage: UNKNOWN DOSE
  3. XATRAL [Concomitant]
     Dosage: UNKNOWN DOSE
  4. ANAFRANIL [Concomitant]
     Dosage: UNKNOWN DOSE
  5. OFLOCET [Concomitant]
     Dosage: UNKNOWN DOSE
  6. COVERSYL [Concomitant]
     Dosage: UNKNOWN DOSE
  7. CRESTOR [Concomitant]
     Dosage: UNKNOWN DOSE
  8. LOVENOX [Concomitant]
     Dosage: UNKNOWN DOSE
  9. DEPAKINE CHRONO [Concomitant]
     Indication: EPILEPSY
     Dosage: 500 MG
     Dates: start: 2013, end: 20131206

REACTIONS (1)
  - Neutropenia [Not Recovered/Not Resolved]
